FAERS Safety Report 23770561 (Version 1)
Quarter: 2024Q2

REPORT INFORMATION
  Report Type: Spontaneous
  Country: FR (occurrence: FR)
  Receive Date: 20240422
  Receipt Date: 20240422
  Transmission Date: 20240716
  Serious: Yes (Other)
  Sender: FDA-Public Use
  Company Number: None

PATIENT
  Age: 104 Year
  Sex: Female
  Weight: 31 kg

DRUGS (7)
  1. CARBAMAZEPINE [Suspect]
     Active Substance: CARBAMAZEPINE
     Indication: Wrong product administered
     Dosage: 200 MG
     Route: 048
     Dates: start: 20240219, end: 20240219
  2. PHENOBARBITAL [Suspect]
     Active Substance: PHENOBARBITAL
     Indication: Wrong product administered
     Dosage: 50 MG
     Route: 048
     Dates: start: 20240219, end: 20240219
  3. PERICIAZINE [Suspect]
     Active Substance: PERICIAZINE
     Indication: Wrong product administered
     Dosage: 40 MG
     Route: 048
     Dates: start: 20240219, end: 20240219
  4. RISPERDAL [Suspect]
     Active Substance: RISPERIDONE
     Indication: Wrong product administered
     Dosage: 1 MG (COMPRIM? PELLICUL? S?CABLE)
     Route: 048
     Dates: start: 20240219, end: 20240219
  5. BISOPROLOL [Suspect]
     Active Substance: BISOPROLOL\BISOPROLOL FUMARATE
     Indication: Wrong product administered
     Dosage: 0.25 MG
     Route: 048
     Dates: start: 20240219, end: 20240219
  6. FUROSEMIDE [Concomitant]
     Active Substance: FUROSEMIDE
     Indication: Product used for unknown indication
     Dosage: UNK (COMPRIM?)
     Route: 065
  7. POLYETHYLENE GLYCOLS [Concomitant]
     Active Substance: POLYETHYLENE GLYCOLS
     Indication: Product used for unknown indication
     Dosage: UNK
     Route: 065

REACTIONS (4)
  - Hypotension [Recovered/Resolved]
  - Dyspnoea [Recovered/Resolved]
  - Somnolence [Recovered/Resolved]
  - Wrong patient [Recovered/Resolved]

NARRATIVE: CASE EVENT DATE: 20240219
